FAERS Safety Report 5754920-6 (Version None)
Quarter: 2008Q2

REPORT INFORMATION
  Report Type: 
  Country: None (occurrence: None)
  Receive Date: 20080527
  Receipt Date: 20080411
  Transmission Date: 20081010
  Serious: Yes (Other)
  Sender: FDA-Public Use
  Company Number: ADE# 08-047

PATIENT
  Age: 58 Year
  Sex: Male
  Weight: 84.369 kg

DRUGS (2)
  1. PHENYTOIN SODIUM [Suspect]
     Indication: EPILEPSY
     Dosage: 6 CAPS. BEDTIME
     Dates: start: 20080101, end: 20080401
  2. LIPITOR [Concomitant]

REACTIONS (7)
  - ANTICONVULSANT DRUG LEVEL ABOVE THERAPEUTIC [None]
  - ATAXIA [None]
  - DIZZINESS [None]
  - DRUG LEVEL CHANGED [None]
  - FACIAL BONES FRACTURE [None]
  - FALL [None]
  - NYSTAGMUS [None]
